FAERS Safety Report 6449762-2 (Version None)
Quarter: 2009Q4

REPORT INFORMATION
  Report Type: 
  Country: None (occurrence: None)
  Receive Date: 20091120
  Receipt Date: 20081104
  Transmission Date: 20100525
  Serious: Yes (Hospitalization)
  Sender: FDA-Public Use
  Company Number: US-AMGEN-QUU288174

PATIENT
  Sex: Male

DRUGS (5)
  1. ENBREL [Suspect]
     Indication: PSORIASIS
     Route: 058
     Dates: start: 20071201
  2. CLOBETASOL PROPIONATE [Concomitant]
  3. DERMA-SMOOTHE/FS [Concomitant]
  4. DOVONEX [Concomitant]
  5. FLUOCINOLONE ACETONIDE [Concomitant]

REACTIONS (5)
  - ACUTE MYELOID LEUKAEMIA [None]
  - DERMATITIS [None]
  - LOCALISED INFECTION [None]
  - RASH [None]
  - STAPHYLOCOCCAL BACTERAEMIA [None]
